FAERS Safety Report 8315944 (Version 2)
Quarter: 2012Q4

REPORT INFORMATION
  Report Type: 
  Country: FR (occurrence: FR)
  Receive Date: 20111229
  Receipt Date: 20121022
  Transmission Date: 20130627
  Serious: Yes (Hospitalization, Other)
  Sender: FDA-Public Use
  Company Number: PHHY2011FR111233

PATIENT
  Age: 65 Year
  Sex: Female

DRUGS (1)
  1. 5-FLUOROURACIL [Suspect]
     Dosage: 6400 mg, UNK

REACTIONS (8)
  - Skin toxicity [Unknown]
  - Neurotoxicity [Unknown]
  - Somnolence [Recovering/Resolving]
  - Confusional state [Recovering/Resolving]
  - Dysarthria [Recovering/Resolving]
  - Mucosal inflammation [Unknown]
  - Neutropenia [Unknown]
  - Thrombocytopenia [Unknown]
